FAERS Safety Report 12155762 (Version 1)
Quarter: 2016Q1

REPORT INFORMATION
  Report Type: Spontaneous
  Country: BR (occurrence: BR)
  Receive Date: 20160307
  Receipt Date: 20160307
  Transmission Date: 20160526
  Serious: Yes (Other)
  Sender: FDA-Public Use
  Company Number: BR-PFIZER INC-2016134582

PATIENT
  Age: 84 Year
  Sex: Male

DRUGS (3)
  1. CORUS [Concomitant]
     Active Substance: LOSARTAN POTASSIUM
     Dosage: UNK
  2. CARVEDILOL. [Concomitant]
     Active Substance: CARVEDILOL
     Dosage: UNK
  3. ATLANSIL [Suspect]
     Active Substance: AMIODARONE
     Indication: ARRHYTHMIA
     Dosage: 1 DF, DAILY
     Route: 048
     Dates: start: 2000

REACTIONS (1)
  - Retinal detachment [Unknown]
